FAERS Safety Report 9398469 (Version 2)
Quarter: 2015Q2

REPORT INFORMATION
  Report Type: Spontaneous
  Country: US (occurrence: US)
  Receive Date: 20130712
  Receipt Date: 20150421
  Transmission Date: 20150821
  Serious: Yes (Other)
  Sender: FDA-Public Use
  Company Number: US-AMGEN-USASP2013048365

PATIENT
  Age: 65 Year
  Sex: Female

DRUGS (1)
  1. SENSIPAR [Suspect]
     Active Substance: CINACALCET HYDROCHLORIDE
     Indication: HYPERPARATHYROIDISM SECONDARY
     Dosage: 60 MG, QD
     Route: 065
     Dates: start: 20120215

REACTIONS (9)
  - Fatigue [Unknown]
  - Cardiac disorder [Unknown]
  - Renal transplant [Unknown]
  - Pruritus [Unknown]
  - Confusional state [Unknown]
  - Blood calcium increased [Unknown]
  - Blood parathyroid hormone increased [Unknown]
  - Skin atrophy [Unknown]
  - Asthenia [Unknown]

NARRATIVE: CASE EVENT DATE: 201207
